FAERS Safety Report 13606508 (Version 2)
Quarter: 2018Q2

REPORT INFORMATION
  Report Type: Spontaneous
  Country: US (occurrence: US)
  Receive Date: 20170602
  Receipt Date: 20180531
  Transmission Date: 20180711
  Serious: No
  Sender: FDA-Public Use
  Company Number: US-NOVEN PHARMACEUTICALS, INC.-US2016003142

PATIENT

DRUGS (3)
  1. DAYTRANA [Suspect]
     Active Substance: METHYLPHENIDATE
     Indication: ATTENTION DEFICIT/HYPERACTIVITY DISORDER
     Dosage: 20 MG, UNKNOWN
     Route: 062
  2. DAYTRANA [Suspect]
     Active Substance: METHYLPHENIDATE
     Indication: AUTISM SPECTRUM DISORDER
     Dosage: 20 MG, UNKNOWN
     Route: 062
  3. CLONIDINE. [Concomitant]
     Active Substance: CLONIDINE
     Indication: INSOMNIA
     Dosage: 0.3 MG, UNK

REACTIONS (5)
  - Wrong technique in product usage process [Unknown]
  - Off label use [Unknown]
  - No adverse event [Unknown]
  - Product quality issue [Unknown]
  - Product adhesion issue [Unknown]
